FAERS Safety Report 8250455-X (Version None)
Quarter: 2012Q2

REPORT INFORMATION
  Report Type: 
  Country: None (occurrence: None)
  Receive Date: 20120402
  Receipt Date: 20120402
  Transmission Date: 20120825
  Serious: Yes (Hospitalization)
  Sender: FDA-Public Use
  Company Number: None

PATIENT
  Age: 34 Year
  Sex: Female

DRUGS (1)
  1. IRON SUCROSE [Suspect]
     Route: 042

REACTIONS (3)
  - TACHYCARDIA [None]
  - ERYTHEMA [None]
  - PALLOR [None]
